FAERS Safety Report 8480156-4 (Version None)
Quarter: 2012Q2

REPORT INFORMATION
  Report Type: 
  Country: None (occurrence: None)
  Receive Date: 20120629
  Receipt Date: 20120618
  Transmission Date: 20120825
  Serious: Yes (Hospitalization)
  Sender: FDA-Public Use
  Company Number: FR-ASTRAZENECA-2012SE09552

PATIENT
  Age: 941 Month
  Sex: Female
  Weight: 70 kg

DRUGS (11)
  1. FLUCONAZOLE [Suspect]
     Route: 048
     Dates: start: 20120120, end: 20120130
  2. ALOPLASTINE [Concomitant]
     Route: 003
     Dates: start: 20120120, end: 20120129
  3. PRAZEPAM [Concomitant]
     Indication: ANXIETY
  4. FLUCONAZOLE [Suspect]
     Indication: ORAL FUNGAL INFECTION
     Route: 048
     Dates: start: 20111103, end: 20111117
  5. ATACAND [Concomitant]
     Indication: HYPERTENSION
     Route: 048
  6. HYPERIUM [Concomitant]
     Indication: HYPERTENSION
     Route: 048
  7. KARDEGIC [Concomitant]
     Indication: ISCHAEMIC CARDIOMYOPATHY
     Route: 048
  8. QUETIAPINE FUMARATE [Suspect]
     Indication: PERSONALITY DISORDER
     Route: 048
     Dates: start: 20111213, end: 20120130
  9. FLUCONAZOLE [Suspect]
     Route: 048
     Dates: start: 20111206, end: 20111219
  10. FUNGIZONE [Concomitant]
     Dosage: 10 %
     Route: 048
     Dates: start: 20120112, end: 20120117
  11. NEXIUM [Concomitant]
     Indication: GASTROOESOPHAGEAL REFLUX DISEASE
     Route: 048

REACTIONS (3)
  - RASH VESICULAR [None]
  - DERMATITIS BULLOUS [None]
  - OFF LABEL USE [None]
